FAERS Safety Report 9290105 (Version 2)
Quarter: 2013Q3

REPORT INFORMATION
  Report Type: Report from Study
  Country: US (occurrence: US)
  Receive Date: 20130515
  Receipt Date: 20130823
  Transmission Date: 20140515
  Serious: No
  Sender: FDA-Public Use
  Company Number: PHEH2013US010714

PATIENT
  Age: 43 Year
  Sex: Female

DRUGS (7)
  1. TASIGNA [Suspect]
     Dosage: 200 MG, UNK
     Dates: end: 20130410
  2. CITALOPRAM [Concomitant]
     Dosage: 10 MG, UNK
  3. OMEPRAZOLE [Concomitant]
     Dosage: 20 MG, UNK
  4. MULTIVITAMINICO C/HIERRO C-STRESS [Concomitant]
  5. B COMPLEX [Concomitant]
  6. ADVIL//IBUPROFEN [Concomitant]
     Dosage: 200 MG, UNK
  7. CALCIUM 500+D [Concomitant]

REACTIONS (5)
  - Blood potassium decreased [Recovered/Resolved]
  - Rash [Recovered/Resolved]
  - Chest pain [Recovered/Resolved]
  - Headache [Recovered/Resolved]
  - Liver function test abnormal [Recovered/Resolved]
